FAERS Safety Report 10212889 (Version 1)
Quarter: 2014Q2

REPORT INFORMATION
  Report Type: Spontaneous
  Country: US (occurrence: US)
  Receive Date: 20140602
  Receipt Date: 20140602
  Transmission Date: 20141212
  Serious: No
  Sender: FDA-Public Use
  Company Number: US-AMGEN-USASP2014040180

PATIENT
  Age: 29 Year
  Sex: Female

DRUGS (4)
  1. ENBREL [Suspect]
     Indication: PRODUCT USED FOR UNKNOWN INDICATION
     Dosage: UNK
     Route: 065
  2. HUMIRA [Suspect]
     Indication: PSORIATIC ARTHROPATHY
     Dosage: 40 MG, UNK
     Route: 065
  3. PROZAC [Concomitant]
     Dosage: 20 MG, QD
     Route: 065
  4. TRAZODONE [Concomitant]
     Dosage: 50 MG, 1 IN 1 D

REACTIONS (7)
  - Cough [Unknown]
  - Arthralgia [Unknown]
  - Drug ineffective [Unknown]
  - Migraine [Unknown]
  - Nasal congestion [Unknown]
  - Mobility decreased [Unknown]
  - Psoriasis [Unknown]
